FAERS Safety Report 7895884-9 (Version None)
Quarter: 2011Q4

REPORT INFORMATION
  Report Type: 
  Country: None (occurrence: None)
  Receive Date: 20111106
  Receipt Date: 20110901
  Transmission Date: 20120403
  Serious: No
  Sender: FDA-Public Use
  Company Number: US-AMGEN-TCS433957

PATIENT
  Age: 65 Year
  Sex: Female

DRUGS (4)
  1. ENBREL [Suspect]
     Indication: RHEUMATOID ARTHRITIS
     Dosage: 50 MG, QWK
     Route: 058
     Dates: start: 20080201, end: 20110801
  2. ENBREL [Suspect]
     Indication: PSORIATIC ARTHROPATHY
  3. TREXALL [Concomitant]
  4. ENBREL [Suspect]
     Indication: PSORIASIS

REACTIONS (10)
  - PUSTULAR PSORIASIS [None]
  - WEIGHT DECREASED [None]
  - INFECTION [None]
  - MIGRAINE [None]
  - FATIGUE [None]
  - TEMPOROMANDIBULAR JOINT SYNDROME [None]
  - PARAESTHESIA [None]
  - HEADACHE [None]
  - HYPOAESTHESIA [None]
  - ALOPECIA [None]
